FAERS Safety Report 10906944 (Version 1)
Quarter: 2015Q1

REPORT INFORMATION
  Report Type: Spontaneous
  Country: US (occurrence: US)
  Receive Date: 20150312
  Receipt Date: 20150312
  Transmission Date: 20150721
  Serious: Yes (Other)
  Sender: FDA-Public Use
  Company Number: US-BAYER-2015-034984

PATIENT
  Sex: Male

DRUGS (3)
  1. BETASERON [Suspect]
     Active Substance: INTERFERON BETA-1B
  2. REBIF [Suspect]
     Active Substance: INTERFERON BETA-1A
     Dosage: UNK
     Dates: end: 200006
  3. TYSABRI [Suspect]
     Active Substance: NATALIZUMAB
     Dosage: UNK
     Dates: start: 20140701

REACTIONS (2)
  - Herpes zoster [None]
  - Feeling abnormal [None]
